FAERS Safety Report 8981028 (Version 1)
Quarter: 2012Q4

REPORT INFORMATION
  Report Type: 
  Country: NO (occurrence: NO)
  Receive Date: 20121221
  Receipt Date: 20121221
  Transmission Date: 20130627
  Serious: Yes (Disabling, Other)
  Sender: FDA-Public Use
  Company Number: NO-PFIZER INC-2012319789

PATIENT
  Age: 30 Year
  Sex: Male
  Weight: 104 kg

DRUGS (2)
  1. XANOR [Suspect]
     Indication: STRESS
     Dosage: 2 mg, Sporadic
     Dates: start: 20090401, end: 20100701
  2. FLUNIPAM [Suspect]
     Indication: STRESS
     Dosage: 1 mg, Unknown
     Dates: start: 20090401, end: 20100801

REACTIONS (8)
  - Suicidal ideation [Unknown]
  - Drug dependence [Unknown]
  - Presyncope [Recovered/Resolved with Sequelae]
  - Eye pain [Recovered/Resolved with Sequelae]
  - Paralysis [Recovered/Resolved with Sequelae]
  - Delusion [Recovering/Resolving]
  - Dyspnoea [Recovered/Resolved with Sequelae]
  - Panic attack [Recovering/Resolving]
